FAERS Safety Report 4541542-8 (Version None)
Quarter: 2004Q4

REPORT INFORMATION
  Report Type: 
  Country: None (occurrence: None)
  Receive Date: 20041227
  Receipt Date: 20041220
  Transmission Date: 20050328
  Serious: Yes (Death, Hospitalization, Other)
  Sender: FDA-Public Use
  Company Number: 2004-12-0852

PATIENT
  Age: 32 Year
  Sex: Female

DRUGS (2)
  1. PEG-INTRON [Suspect]
     Indication: HEPATITIS C
     Dosage: 80 MCG SUBCUTANEOUS
     Route: 058
     Dates: start: 20040101, end: 20040303
  2. REBETOL [Suspect]
     Indication: HEPATITIS C
     Dosage: WEIGHT-BASED ORAL
     Route: 048
     Dates: start: 20040101, end: 20040303

REACTIONS (4)
  - DELUSIONAL DISORDER, PERSECUTORY TYPE [None]
  - DRUG INTOLERANCE [None]
  - SUDDEN DEATH [None]
  - THROMBOPHLEBITIS [None]
